FAERS Safety Report 11397404 (Version 3)
Quarter: 2015Q4

REPORT INFORMATION
  Report Type: Spontaneous
  Country: US (occurrence: US)
  Receive Date: 20150819
  Receipt Date: 20151009
  Transmission Date: 20160304
  Serious: Yes (Hospitalization)
  Sender: FDA-Public Use
  Company Number: US-INCYTE CORPORATION-2015IN004069

PATIENT
  Age: 83 Year
  Sex: Male

DRUGS (3)
  1. JAKAFI [Suspect]
     Active Substance: RUXOLITINIB
     Dosage: 1/2 PILL M, W, F
     Route: 048
     Dates: start: 20150803, end: 201508
  2. JAKAFI [Suspect]
     Active Substance: RUXOLITINIB
     Dosage: WHOLE PILL M, W, F
     Route: 048
     Dates: start: 20150814, end: 20150824
  3. JAKAFI [Suspect]
     Active Substance: RUXOLITINIB
     Indication: MYELOFIBROSIS
     Dosage: 25 MG, BID
     Route: 048
     Dates: start: 20150530, end: 2015

REACTIONS (6)
  - Constipation [Recovered/Resolved]
  - Pollakiuria [Unknown]
  - Wrong technique in product usage process [Unknown]
  - Feeling hot [Unknown]
  - Hypoaesthesia [Unknown]
  - Dizziness [Unknown]

NARRATIVE: CASE EVENT DATE: 20150723
